FAERS Safety Report 8774729 (Version 4)
Quarter: 2013Q1

REPORT INFORMATION
  Report Type: Report from Study
  Country: US (occurrence: US)
  Receive Date: 20120910
  Receipt Date: 20130114
  Transmission Date: 20140127
  Serious: Yes (Other)
  Sender: FDA-Public Use
  Company Number: US-CELGENEUS-163-C5013-12083283

PATIENT
  Age: 75 Year
  Sex: Male
  Weight: 134.75 kg

DRUGS (1)
  1. CC-5013 [Suspect]
     Indication: NON-HODGKIN^S LYMPHOMA
     Dosage: 25 MILLIGRAM
     Dates: start: 20090427, end: 20111027

REACTIONS (1)
  - Bladder cancer [Not Recovered/Not Resolved]
